FAERS Safety Report 5605650-2 (Version None)
Quarter: 2008Q1

REPORT INFORMATION
  Report Type: 
  Country: None (occurrence: None)
  Receive Date: 20080129
  Receipt Date: 20080121
  Transmission Date: 20080703
  Serious: Yes (Other)
  Sender: FDA-Public Use
  Company Number: JP-JNJFOC-20080101899

PATIENT
  Sex: Male
  Weight: 70 kg

DRUGS (12)
  1. ITRIZOLE [Suspect]
     Indication: PROPHYLAXIS
     Route: 048
  2. VELCADE [Suspect]
     Route: 042
  3. VELCADE [Suspect]
     Route: 042
  4. VELCADE [Suspect]
     Route: 042
  5. VELCADE [Suspect]
     Route: 042
  6. VELCADE [Suspect]
     Indication: MULTIPLE MYELOMA
     Route: 042
  7. SULFAMETHOXAZOLE WITH TRIMETHOPRIM [Suspect]
     Indication: PROPHYLAXIS
     Route: 048
  8. AZULENE [Concomitant]
     Indication: PURPURA
     Route: 061
  9. DEPRODONE PROPIONATE [Concomitant]
     Indication: PURPURA
     Route: 061
  10. DEXAMETHASONE TAB [Concomitant]
     Indication: MULTIPLE MYELOMA
     Route: 048
  11. BETAMETHASONE BUTYRATE [Concomitant]
     Indication: PURPURA
     Route: 061
  12. HEPARINOID [Concomitant]
     Indication: PURPURA
     Route: 061

REACTIONS (7)
  - BLOOD LACTATE DEHYDROGENASE INCREASED [None]
  - C-REACTIVE PROTEIN INCREASED [None]
  - HEPATIC FUNCTION ABNORMAL [None]
  - PLATELET COUNT DECREASED [None]
  - PURPURA [None]
  - PYREXIA [None]
  - WHITE BLOOD CELL COUNT DECREASED [None]
